FAERS Safety Report 12694123 (Version 1)
Quarter: 2016Q3

REPORT INFORMATION
  Report Type: Spontaneous
  Country: US (occurrence: US)
  Receive Date: 20160829
  Receipt Date: 20160829
  Transmission Date: 20161109
  Serious: No
  Sender: FDA-Public Use
  Company Number: US-PFIZER INC-2016402194

PATIENT
  Age: 78 Year
  Sex: Female

DRUGS (2)
  1. IBRANCE [Suspect]
     Active Substance: PALBOCICLIB
     Indication: BREAST CANCER
     Dosage: 125 MG, DAILY (FOR 21 DAYS)
     Dates: start: 20160418
  2. LETROZOLE. [Suspect]
     Active Substance: LETROZOLE
     Indication: BREAST CANCER
     Dosage: UNK (FOR 21 DAYS)
     Dates: start: 20160418

REACTIONS (2)
  - Ageusia [Unknown]
  - Alopecia [Unknown]
